FAERS Safety Report 17023449 (Version 5)
Quarter: 2020Q1

REPORT INFORMATION
  Report Type: Report from Study
  Country: US (occurrence: US)
  Receive Date: 20191112
  Receipt Date: 20200124
  Transmission Date: 20200409
  Serious: Yes (Hospitalization)
  Sender: FDA-Public Use
  Company Number: US-SHIRE-US201938850

PATIENT
  Age: 72 Year
  Sex: Female

DRUGS (4)
  1. FIRAZYR [Suspect]
     Active Substance: ICATIBANT ACETATE
     Dosage: 3ML/30MG, AS REQ^D
     Route: 058
     Dates: start: 20170823
  2. CINRYZE [Suspect]
     Active Substance: HUMAN C1-ESTERASE INHIBITOR
     Indication: IMMUNE SYSTEM DISORDER
     Dosage: 1000 INTERNATIONAL UNIT, EVERY 3 DAYS
     Route: 042
     Dates: start: 20191217
  3. FIRAZYR [Suspect]
     Active Substance: ICATIBANT ACETATE
     Indication: PRODUCT USED FOR UNKNOWN INDICATION
     Dosage: 3ML/MG, AS REQ^D
     Route: 058
     Dates: start: 20190213
  4. 643 (LANADELUMAB) [Suspect]
     Active Substance: LANADELUMAB
     Indication: PRODUCT USED FOR UNKNOWN INDICATION
     Dosage: 300 MILLIGRAM, 1X/2WKS
     Route: 058
     Dates: start: 20181121

REACTIONS (6)
  - Hereditary angioedema [Recovering/Resolving]
  - Incorrect product administration duration [Unknown]
  - Abdominal pain upper [Recovering/Resolving]
  - Flatulence [Recovering/Resolving]
  - Product dose omission [Recovering/Resolving]
  - Malaise [Recovering/Resolving]

NARRATIVE: CASE EVENT DATE: 20191213
